FAERS Safety Report 10259015 (Version 1)
Quarter: 2014Q2

REPORT INFORMATION
  Report Type: Spontaneous
  Country: SE (occurrence: SE)
  Receive Date: 20140625
  Receipt Date: 20140625
  Transmission Date: 20141212
  Serious: Yes (Other)
  Sender: FDA-Public Use
  Company Number: SE-BAYER-2014-091063

PATIENT
  Age: 11 Year
  Sex: Male

DRUGS (3)
  1. AVELOX [Suspect]
     Indication: MASTOIDITIS
     Dosage: UNK
     Dates: start: 20130409, end: 20140122
  2. AZITHROMYCIN [Suspect]
     Indication: MASTOIDITIS
     Dosage: 500 MG, QD
     Dates: start: 20130409, end: 20140122
  3. RIMACTAN [Suspect]
     Indication: MASTOIDITIS
     Dosage: UNK
     Dates: start: 20130409, end: 20140122

REACTIONS (3)
  - Tongue discolouration [Recovered/Resolved with Sequelae]
  - Tooth discolouration [Recovered/Resolved with Sequelae]
  - Arrhythmia [Recovered/Resolved with Sequelae]
